FAERS Safety Report 25649950 (Version 1)
Quarter: 2025Q3

REPORT INFORMATION
  Report Type: Spontaneous
  Country: US (occurrence: US)
  Receive Date: 20250806
  Receipt Date: 20250806
  Transmission Date: 20251021
  Serious: No
  Sender: MYLAN
  Company Number: US-MYLANLABS-2025M1065371

PATIENT
  Sex: Female

DRUGS (8)
  1. DILANTIN [Suspect]
     Active Substance: PHENYTOIN
     Indication: Product used for unknown indication
     Dosage: 1 DOSAGE FORM, TID (THREE TIMES A DAY)
     Route: 065
  2. DILANTIN [Suspect]
     Active Substance: PHENYTOIN
     Dosage: 1 DOSAGE FORM, TID (THREE TIMES A DAY)
  3. DILANTIN [Suspect]
     Active Substance: PHENYTOIN
     Dosage: 1 DOSAGE FORM, TID (THREE TIMES A DAY)
  4. DILANTIN [Suspect]
     Active Substance: PHENYTOIN
     Dosage: 1 DOSAGE FORM, TID (THREE TIMES A DAY)
     Route: 065
  5. DILANTIN [Suspect]
     Active Substance: PHENYTOIN
     Dosage: UNK, BIWEEKLY (TWICE A WEEK)
     Route: 065
  6. DILANTIN [Suspect]
     Active Substance: PHENYTOIN
     Dosage: UNK, BIWEEKLY (TWICE A WEEK)
  7. DILANTIN [Suspect]
     Active Substance: PHENYTOIN
     Dosage: UNK, BIWEEKLY (TWICE A WEEK)
  8. DILANTIN [Suspect]
     Active Substance: PHENYTOIN
     Dosage: UNK, BIWEEKLY (TWICE A WEEK)
     Route: 065

REACTIONS (1)
  - Laboratory test abnormal [Unknown]
